FAERS Safety Report 20703688 (Version 3)
Quarter: 2022Q3

REPORT INFORMATION
  Report Type: Spontaneous
  Country: JP (occurrence: JP)
  Receive Date: 20220413
  Receipt Date: 20220911
  Transmission Date: 20221026
  Serious: Yes (Death, Other)
  Sender: FDA-Public Use
  Company Number: JP-NOVARTISPH-NVSJ2022JP005716

PATIENT
  Age: 16 Month
  Sex: Male
  Weight: 11.5 kg

DRUGS (3)
  1. KYMRIAH [Suspect]
     Active Substance: TISAGENLECLEUCEL
     Indication: Acute lymphocytic leukaemia recurrent
     Dosage: FULL DOSE,2E6 CAR-POSITIVE VIABLE T-VELLS/KG BODY WEIGHT
     Route: 041
     Dates: start: 20220209, end: 20220209
  2. CYCLOPHOSPHAMIDE [Concomitant]
     Active Substance: CYCLOPHOSPHAMIDE
     Indication: Lymphodepletion
     Dosage: UNK
     Route: 065
     Dates: start: 202202, end: 202202
  3. FLUDARABINE PHOSPHATE [Concomitant]
     Active Substance: FLUDARABINE PHOSPHATE
     Indication: Lymphodepletion
     Dosage: UNK
     Route: 065
     Dates: start: 202202, end: 202202

REACTIONS (8)
  - Death [Fatal]
  - Transformation to acute myeloid leukaemia [Not Recovered/Not Resolved]
  - Lineage switch leukaemia [Not Recovered/Not Resolved]
  - Cytokine release syndrome [Unknown]
  - Pyrexia [Unknown]
  - Gamma-glutamyltransferase increased [Unknown]
  - Pseudomonal sepsis [Unknown]
  - B-lymphocyte count decreased [Not Recovered/Not Resolved]

NARRATIVE: CASE EVENT DATE: 20220213
